FAERS Safety Report 25387074 (Version 1)
Quarter: 2025Q2

REPORT INFORMATION
  Report Type: Spontaneous
  Country: GB (occurrence: GB)
  Receive Date: 20250602
  Receipt Date: 20250602
  Transmission Date: 20250716
  Serious: Yes (Other)
  Sender: TEVA
  Company Number: GB-CRESCENT PHARMA LIMITED-2024-GB-08881

PATIENT
  Age: 84 Year
  Sex: Male

DRUGS (1)
  1. CETIRIZINE HYDROCHLORIDE [Suspect]
     Active Substance: CETIRIZINE HYDROCHLORIDE
     Indication: Seasonal allergy
     Dosage: WHEN THE POLLEN IS REALLY BAD, THE PATIENT TAKES HALF A TABLET EXTRA.
     Route: 065
     Dates: start: 202405, end: 2024

REACTIONS (3)
  - Psychotic disorder [Recovered/Resolved]
  - Anger [Recovered/Resolved]
  - Paranoia [Recovered/Resolved]

NARRATIVE: CASE EVENT DATE: 20240101
